FAERS Safety Report 13753578 (Version 2)
Quarter: 2017Q4

REPORT INFORMATION
  Report Type: Spontaneous
  Country: GB (occurrence: GB)
  Receive Date: 20170714
  Receipt Date: 20171002
  Transmission Date: 20180320
  Serious: Yes (Other)
  Sender: FDA-Public Use
  Company Number: GB-SHIRE-GB201715013

PATIENT
  Age: 11 Year
  Sex: Female
  Weight: 25.5 kg

DRUGS (3)
  1. INTUNIV [Suspect]
     Active Substance: GUANFACINE HYDROCHLORIDE
     Indication: ATTENTION DEFICIT/HYPERACTIVITY DISORDER
     Dosage: 2 MG, 1X/DAY:QD
     Route: 048
     Dates: start: 20170619, end: 20170630
  2. INTUNIV [Suspect]
     Active Substance: GUANFACINE HYDROCHLORIDE
     Indication: OFF LABEL USE
     Dosage: 1 MG, UNK
     Route: 050
     Dates: start: 20170612, end: 20170619
  3. INTUNIV [Suspect]
     Active Substance: GUANFACINE HYDROCHLORIDE
     Indication: FOETAL ALCOHOL SYNDROME
     Dosage: 1 MG, 1X/DAY:QD
     Route: 048
     Dates: start: 20170630, end: 20170706

REACTIONS (3)
  - Aggression [Recovered/Resolved]
  - Off label use [Unknown]
  - Intentional self-injury [Recovered/Resolved]

NARRATIVE: CASE EVENT DATE: 2017
